FAERS Safety Report 14201774 (Version 1)
Quarter: 2017Q4

REPORT INFORMATION
  Report Type: Spontaneous
  Country: US (occurrence: US)
  Receive Date: 20171117
  Receipt Date: 20171117
  Transmission Date: 20180321
  Serious: Yes (Disabling, Other)
  Sender: FDA-Public Use
  Company Number: US-SAOL THERAPEUTICS-2017SAO01630

PATIENT
  Age: 51 Year
  Sex: Male
  Weight: 111.11 kg

DRUGS (38)
  1. CARDURA [Concomitant]
     Active Substance: DOXAZOSIN MESYLATE
     Dosage: 4 MG, 1X/DAY
  2. VITAMIN B COMPLEX [Concomitant]
     Active Substance: CYANOCOBALAMIN\DEXPANTHENOL\NIACINAMIDE\PYRIDOXINE HYDROCHLORIDE\RIBOFLAVIN 5^-PHOSPHATE SODIUM\THIAMINE HYDROCHLORIDE\VITAMIN B COMPLEX
  3. CINNAMON. [Concomitant]
     Active Substance: CINNAMON
  4. EFFEXOR [Concomitant]
     Active Substance: VENLAFAXINE HYDROCHLORIDE
     Dosage: 150 MG, 1X/DAY
  5. VOLTAREN [Concomitant]
     Active Substance: DICLOFENAC SODIUM
  6. MYRBETRIQ [Concomitant]
     Active Substance: MIRABEGRON
     Dosage: UNK, 1X/DAY
  7. VITAMIN D3 [Concomitant]
     Active Substance: CHOLECALCIFEROL
  8. KEFIR CULTURES [Concomitant]
  9. TOPAMAX [Concomitant]
     Active Substance: TOPIRAMATE
     Dosage: UNK, 2X/DAY
  10. PROBIOTIC BLEND POWDER [Concomitant]
  11. COMPOUNDED BACLOFEN [Suspect]
     Active Substance: BACLOFEN
     Dosage: 120 ?G, \DAY
     Route: 037
  12. COMPOUNDED BACLOFEN [Suspect]
     Active Substance: BACLOFEN
     Dosage: 120.2 ?G, \DAY
     Route: 037
  13. ANDROGEL [Concomitant]
     Active Substance: TESTOSTERONE
     Dosage: 4 DOSAGE UNITS, 1X/DAY
  14. MECLIZINE [Concomitant]
     Active Substance: MECLIZINE HYDROCHLORIDE
     Dosage: UNK, AS NEEDED
  15. PRO OMEGA LDL [Concomitant]
  16. MIRALAX + CHIA SEEDS [Concomitant]
  17. CELLCEPT [Concomitant]
     Active Substance: MYCOPHENOLATE MOFETIL\MYCOPHENOLATE MOFETIL HYDROCHLORIDE
     Dosage: 600 MG, 1X/DAY
  18. NEURONTIN [Concomitant]
     Active Substance: GABAPENTIN
     Dosage: 900 MG, 1X/DAY
  19. BOTOX [Concomitant]
     Active Substance: ONABOTULINUMTOXINA
     Dosage: UNK, AS NEEDED
     Dates: start: 2005
  20. GLUCOSAMINE / CHONDROITIN [Concomitant]
  21. DIGESTIVE ENZYMES [Concomitant]
     Active Substance: UNSPECIFIED INGREDIENT
  22. ENEMEEZ [Concomitant]
     Active Substance: DOCUSATE SODIUM
  23. STEROID INJECTIONS (UNSPECIFIED) [Concomitant]
     Dosage: UNK, 4X/YEAR
     Route: 008
     Dates: start: 2005
  24. COMPOUNDED FENTANYL [Suspect]
     Active Substance: FENTANYL
     Dosage: 72 ?G, \DAY
  25. RITUXAN [Concomitant]
     Active Substance: RITUXIMAB
     Route: 042
  26. BACLOFEN (ORAL) [Concomitant]
     Active Substance: BACLOFEN
     Dosage: 20 MG, AS NEEDED
     Route: 048
  27. CELLCEPT [Concomitant]
     Active Substance: MYCOPHENOLATE MOFETIL\MYCOPHENOLATE MOFETIL HYDROCHLORIDE
     Dosage: 900 MG, 1X/DAY
  28. NEURONTIN [Concomitant]
     Active Substance: GABAPENTIN
     Dosage: 600 MG, 1X/DAY
  29. LUNESTA [Concomitant]
     Active Substance: ESZOPICLONE
     Dosage: UNK, AS NEEDED
  30. COMPOUNDED FENTANYL [Suspect]
     Active Substance: FENTANYL
     Dosage: 120.2 ?G, \DAY
     Route: 037
  31. AMPYRA [Concomitant]
     Active Substance: DALFAMPRIDINE
     Dosage: UNK, 1X/DAY
  32. PSYLLIUM / FIBER POWDER [Concomitant]
  33. COLASE [Concomitant]
     Dosage: 200 MG, UNK
  34. EFFEXOR [Concomitant]
     Active Substance: VENLAFAXINE HYDROCHLORIDE
     Dosage: 75 MG, 1X/DAY
  35. VESICARE [Concomitant]
     Active Substance: SOLIFENACIN SUCCINATE
     Dosage: UNK UNK, 1X/DAY
  36. XYZAL [Concomitant]
     Active Substance: LEVOCETIRIZINE DIHYDROCHLORIDE
     Dosage: UNK, AS NEEDED
  37. AMOXICILLIN. [Concomitant]
     Active Substance: AMOXICILLIN
  38. CALCIUM CITRATE [Concomitant]
     Active Substance: CALCIUM CITRATE

REACTIONS (29)
  - Joint dislocation [Recovered/Resolved with Sequelae]
  - Muscle spasticity [Unknown]
  - Arthropathy [Unknown]
  - Intervertebral disc degeneration [None]
  - Myofascial pain syndrome [Unknown]
  - Muscle tightness [Unknown]
  - Asthenia [Unknown]
  - Burning sensation [Unknown]
  - Amnesia [Unknown]
  - Arachnoid cyst [Unknown]
  - Vertebral foraminal stenosis [None]
  - Orchidectomy [Unknown]
  - Back pain [Unknown]
  - Radiculopathy [Unknown]
  - Neuritis [Unknown]
  - Sleep apnoea syndrome [Unknown]
  - Nerve root compression [Unknown]
  - Drug hypersensitivity [Unknown]
  - Back disorder [Unknown]
  - Herpes zoster [Unknown]
  - Neck pain [Unknown]
  - Dizziness postural [None]
  - Pain [Unknown]
  - Arthritis [Unknown]
  - Pain in extremity [Unknown]
  - Intervertebral disc protrusion [Unknown]
  - Fatigue [Unknown]
  - Vertigo [None]
  - Complication associated with device [Recovered/Resolved]

NARRATIVE: CASE EVENT DATE: 2013
